FAERS Safety Report 24914135 (Version 1)
Quarter: 2025Q1

REPORT INFORMATION
  Report Type: Report from Study
  Country: CA (occurrence: CA)
  Receive Date: 20250202
  Receipt Date: 20250202
  Transmission Date: 20250409
  Serious: Yes (Other)
  Sender: TAKEDA
  Company Number: CA-TAKEDA-2025TUS009153

PATIENT
  Sex: Female

DRUGS (2)
  1. VEDOLIZUMAB [Suspect]
     Active Substance: VEDOLIZUMAB
     Indication: Crohn^s disease
  2. PENTASA [Concomitant]
     Active Substance: MESALAMINE

REACTIONS (2)
  - Chronic myeloid leukaemia [Unknown]
  - Therapeutic reaction time decreased [Unknown]
